FAERS Safety Report 21276538 (Version 6)
Quarter: 2023Q4

REPORT INFORMATION
  Report Type: Report from Study
  Country: US (occurrence: US)
  Receive Date: 20220831
  Receipt Date: 20231229
  Transmission Date: 20240109
  Serious: Yes (Other)
  Sender: FDA-Public Use
  Company Number: US-ABBVIE-22K-163-4409504-00

PATIENT
  Sex: Female

DRUGS (6)
  1. HUMIRA [Suspect]
     Active Substance: ADALIMUMAB
     Indication: Hidradenitis
     Dosage: STRENGTH: 20 MG
     Route: 058
     Dates: start: 202009
  2. HUMIRA [Suspect]
     Active Substance: ADALIMUMAB
  3. HUMIRA [Suspect]
     Active Substance: ADALIMUMAB
     Indication: Rheumatoid arthritis
     Dosage: STRENGTH: 40 MG?START DATE: 2 YEARS AGO
     Route: 058
     Dates: start: 2021, end: 202304
  4. HUMIRA [Suspect]
     Active Substance: ADALIMUMAB
     Indication: Rheumatoid arthritis
     Dosage: STRENGTH: 40 MG
     Route: 058
     Dates: start: 202307
  5. HUMALOG [Concomitant]
     Active Substance: INSULIN LISPRO
     Indication: Type 1 diabetes mellitus
  6. LANTUS [Concomitant]
     Active Substance: INSULIN GLARGINE
     Indication: Type 1 diabetes mellitus

REACTIONS (14)
  - Tongue injury [Unknown]
  - Type 1 diabetes mellitus [Unknown]
  - Blood glucose abnormal [Unknown]
  - Deformity [Unknown]
  - Blood glucose abnormal [Unknown]
  - Alopecia [Unknown]
  - Drug ineffective [Not Recovered/Not Resolved]
  - Tooth fracture [Unknown]
  - Therapeutic product effect variable [Unknown]
  - Tooth abscess [Recovering/Resolving]
  - Postoperative wound infection [Unknown]
  - Aptyalism [Unknown]
  - Impaired healing [Unknown]
  - Dry mouth [Unknown]

NARRATIVE: CASE EVENT DATE: 20200101
